FAERS Safety Report 9681770 (Version 1)
Quarter: 2013Q4

REPORT INFORMATION
  Report Type: Spontaneous
  Country: NL (occurrence: NL)
  Receive Date: 20131111
  Receipt Date: 20131111
  Transmission Date: 20140711
  Serious: Yes (Life-Threatening)
  Sender: FDA-Public Use
  Company Number: NL-TEVA-443255ISR

PATIENT
  Age: 68 Year
  Sex: Male
  Weight: 72 kg

DRUGS (1)
  1. AMOXICILLINE CAPSULE 500MG [Suspect]
     Indication: PROSTATITIS
     Dosage: 3 DOSAGE FORMS DAILY; 3 TIMES A DAY 1 PIECE
     Route: 048
     Dates: start: 20120516

REACTIONS (1)
  - Hepatic failure [Recovered/Resolved]
